FAERS Safety Report 9737215 (Version 2)
Quarter: 2014Q1

REPORT INFORMATION
  Report Type: Spontaneous
  Country: JP (occurrence: JP)
  Receive Date: 20131206
  Receipt Date: 20140228
  Transmission Date: 20141002
  Serious: Yes (Other)
  Sender: FDA-Public Use
  Company Number: JP-VERTEX PHARMACEUTICALS INC-2013-011649

PATIENT
  Age: 51 Year
  Sex: Male

DRUGS (3)
  1. TELAVIC [Suspect]
     Indication: HEPATITIS C
     Dosage: 1500 MG, QD
     Route: 048
     Dates: start: 20131002, end: 20131023
  2. REBETOL [Suspect]
     Indication: HEPATITIS C
     Dosage: 600 MG, QD
     Route: 048
     Dates: start: 20131002
  3. PEGINTRON [Suspect]
     Indication: HEPATITIS C
     Dosage: 90 ?G, QD
     Route: 058
     Dates: start: 20131002

REACTIONS (1)
  - Rash [Recovered/Resolved]
